FAERS Safety Report 4942896-0 (Version None)
Quarter: 2006Q1

REPORT INFORMATION
  Report Type: 
  Country: None (occurrence: None)
  Receive Date: 20060309
  Receipt Date: 20060302
  Transmission Date: 20060701
  Serious: Yes (Hospitalization)
  Sender: FDA-Public Use
  Company Number: ZONI002282

PATIENT
  Age: 76 Year
  Sex: Male

DRUGS (8)
  1. ZONISAMIDE [Suspect]
     Indication: CONVULSION
     Dosage: 200 MG, 2 IN 1 D, ORAL
     Route: 048
     Dates: start: 20060105, end: 20060125
  2. SYMMETREL [Concomitant]
  3. DAI-KENCHU-TO (CHINESE MEDICINE MAINLY FOR GI PROKINETIC) [Concomitant]
  4. BIO-THREE (CLOSTRIDIUM BUTYRICUM) [Concomitant]
  5. ADALAT [Concomitant]
  6. DIOVAN [Concomitant]
  7. SERMION (NICERGOLINE) [Concomitant]
  8. EPADEL (ETHYL ICOSAPENTATE) [Concomitant]

REACTIONS (1)
  - STEVENS-JOHNSON SYNDROME [None]
